FAERS Safety Report 9724007 (Version 1)
Quarter: 2013Q4

REPORT INFORMATION
  Report Type: Spontaneous
  Country: JP (occurrence: JP)
  Receive Date: 20131202
  Receipt Date: 20131202
  Transmission Date: 20140711
  Serious: Yes (Hospitalization, Disabling, Other)
  Sender: FDA-Public Use
  Company Number: JP-WATSON-2013-21691

PATIENT
  Age: 69 Year
  Sex: Female

DRUGS (6)
  1. TACROLIMUS (UNKNOWN) [Suspect]
     Indication: SYSTEMIC LUPUS ERYTHEMATOSUS
     Dosage: 3 MG, DAILY
     Route: 065
     Dates: start: 200910, end: 201010
  2. PREDNISOLON                        /00016201/ [Concomitant]
     Indication: MIXED CONNECTIVE TISSUE DISEASE
     Dosage: 10 MG, DAILY
     Route: 048
     Dates: start: 1984
  3. PREDNISOLON                        /00016201/ [Concomitant]
     Dosage: 5 MG, DAILY
     Route: 065
     Dates: end: 2001
  4. PREDNISOLON                        /00016201/ [Concomitant]
     Dosage: 10 MG, DAILY
     Route: 065
     Dates: start: 2001, end: 2006
  5. PREDNISOLON                        /00016201/ [Concomitant]
     Dosage: 5 MG, DAILY
     Dates: start: 2006, end: 200910
  6. PREDNISOLON                        /00016201/ [Concomitant]
     Dosage: 10 MG, DAILY
     Route: 065
     Dates: start: 200910

REACTIONS (2)
  - Diffuse large B-cell lymphoma stage III [Not Recovered/Not Resolved]
  - Renal impairment [Unknown]
